FAERS Safety Report 6745856-2 (Version None)
Quarter: 2010Q2

REPORT INFORMATION
  Report Type: 
  Country: None (occurrence: None)
  Receive Date: 20100528
  Receipt Date: 20100517
  Transmission Date: 20101027
  Serious: Yes (Other)
  Sender: FDA-Public Use
  Company Number: US-ASTRAZENECA-2010SE24025

PATIENT
  Age: 15264 Day
  Sex: Female

DRUGS (10)
  1. SEROQUEL [Suspect]
     Dosage: 200 MG
     Route: 048
     Dates: start: 20090101
  2. IMITREX [Concomitant]
     Dosage: 100 MG
     Dates: start: 20090109
  3. ERYTHROMYCIN [Concomitant]
     Route: 048
     Dates: start: 20090112
  4. ABILIFY [Concomitant]
     Dates: start: 20090101
  5. LAMICTAL [Concomitant]
     Dates: start: 20090101
  6. CYMBALTA [Concomitant]
     Dates: start: 20090101
  7. TOPAMAX [Concomitant]
     Dates: start: 20090101
  8. LYRICA [Concomitant]
     Dates: start: 20090101
  9. AMBIEN [Concomitant]
     Dates: start: 20090101
  10. LEXAPRO [Concomitant]
     Dates: start: 20090101

REACTIONS (1)
  - PULMONARY EMBOLISM [None]
